FAERS Safety Report 15747341 (Version 2)
Quarter: 2019Q2

REPORT INFORMATION
  Report Type: Spontaneous
  Country: US (occurrence: US)
  Receive Date: 20181220
  Receipt Date: 20190627
  Transmission Date: 20190711
  Serious: No
  Sender: FDA-Public Use
  Company Number: US-AVADEL SPECIALTY PHARMACEUTICALS, LLC-2018AVA00366

PATIENT
  Sex: Male
  Weight: 61.22 kg

DRUGS (13)
  1. AMBIEN [Concomitant]
     Active Substance: ZOLPIDEM TARTRATE
  2. NOCTIVA [Suspect]
     Active Substance: DESMOPRESSIN ACETATE
     Indication: NOCTURIA
     Dosage: 0.83 ?G, 1X/DAY
     Route: 045
     Dates: start: 2018, end: 2018
  3. UNSPECIFIED OTC ALLERGY MEDICATION [Concomitant]
  4. CBD OIL [Concomitant]
     Active Substance: CANNABIDIOL\HERBALS
  5. FIBER [Concomitant]
     Active Substance: PSYLLIUM HUSK
  6. WELLBUTRIN [Concomitant]
     Active Substance: BUPROPION HYDROCHLORIDE
  7. GUAIFENESIN. [Concomitant]
     Active Substance: GUAIFENESIN
  8. UNSPECIFIED CALCIUM CONTAINING PRODUCT [Concomitant]
  9. HYDRALAZINE [Concomitant]
     Active Substance: HYDRALAZINE HYDROCHLORIDE
  10. MULTIVITAMIN [Concomitant]
     Active Substance: VITAMINS
  11. NOCTIVA [Suspect]
     Active Substance: DESMOPRESSIN ACETATE
     Indication: NOCTURIA
     Dosage: 1.66 ?G, 1X/DAY
     Route: 045
     Dates: start: 2018
  12. TRAMADOL. [Concomitant]
     Active Substance: TRAMADOL
  13. SINGULAIR [Concomitant]
     Active Substance: MONTELUKAST SODIUM

REACTIONS (11)
  - Upper-airway cough syndrome [Not Recovered/Not Resolved]
  - Nasal discomfort [Not Recovered/Not Resolved]
  - Product packaging quantity issue [Not Recovered/Not Resolved]
  - Parosmia [Not Recovered/Not Resolved]
  - Therapeutic product effect decreased [Not Recovered/Not Resolved]
  - Throat irritation [Not Recovered/Not Resolved]
  - Product preparation issue [Not Recovered/Not Resolved]
  - Incorrect dose administered by device [Not Recovered/Not Resolved]
  - Choking sensation [Not Recovered/Not Resolved]
  - Dysgeusia [Not Recovered/Not Resolved]
  - Product complaint [Not Recovered/Not Resolved]

NARRATIVE: CASE EVENT DATE: 2018
